FAERS Safety Report 25012081 (Version 1)
Quarter: 2025Q1

REPORT INFORMATION
  Report Type: Report from Study
  Country: US (occurrence: US)
  Receive Date: 20250226
  Receipt Date: 20250226
  Transmission Date: 20250408
  Serious: Yes (Hospitalization)
  Sender: ABBVIE
  Company Number: US-ABBVIE-6146457

PATIENT
  Age: 56 Year
  Sex: Male

DRUGS (2)
  1. RINVOQ [Suspect]
     Active Substance: UPADACITINIB
     Indication: Rheumatoid arthritis
     Route: 048
     Dates: start: 20200313
  2. RINVOQ [Suspect]
     Active Substance: UPADACITINIB
     Indication: Rheumatoid arthritis
     Route: 048

REACTIONS (6)
  - Pneumonia streptococcal [Unknown]
  - Arthralgia [Unknown]
  - Immune system disorder [Unknown]
  - Lung disorder [Not Recovered/Not Resolved]
  - Respiratory disorder [Unknown]
  - Asthma [Unknown]

NARRATIVE: CASE EVENT DATE: 20220101
